FAERS Safety Report 7372799-6 (Version None)
Quarter: 2011Q1

REPORT INFORMATION
  Report Type: 
  Country: None (occurrence: None)
  Receive Date: 20110324
  Receipt Date: 20110107
  Transmission Date: 20110831
  Serious: No
  Sender: FDA-Public Use
  Company Number: US-BAUSCH-2010BL006419

PATIENT
  Age: 68 Year
  Sex: Female

DRUGS (8)
  1. LISINOPRIL [Concomitant]
     Indication: HYPERTENSION
     Route: 048
  2. BESIVANCE [Suspect]
     Indication: POSTOPERATIVE CARE
     Route: 047
     Dates: start: 20101025, end: 20101030
  3. BESIVANCE [Suspect]
     Indication: OFF LABEL USE
     Route: 047
     Dates: start: 20101025, end: 20101030
  4. GABAPENTIN [Concomitant]
     Indication: NEUROPATHY PERIPHERAL
     Route: 048
  5. TRAMADOL [Concomitant]
     Indication: NEUROPATHY PERIPHERAL
     Route: 048
  6. DICLOFENAC SODIUM [Concomitant]
     Indication: POSTOPERATIVE CARE
     Route: 047
     Dates: start: 20101025, end: 20101030
  7. PRILOSEC [Concomitant]
     Indication: PRODUCT USED FOR UNKNOWN INDICATION
     Route: 048
  8. PREDNISOLONE ACETATE [Suspect]
     Indication: POSTOPERATIVE CARE
     Route: 047
     Dates: start: 20101025, end: 20101030

REACTIONS (3)
  - KERATITIS [None]
  - CORNEAL EPITHELIUM DEFECT [None]
  - HYPERSENSITIVITY [None]
